FAERS Safety Report 7762642-5 (Version None)
Quarter: 2011Q3

REPORT INFORMATION
  Report Type: 
  Country: None (occurrence: None)
  Receive Date: 20110920
  Receipt Date: 20110914
  Transmission Date: 20111222
  Serious: Yes (Other)
  Sender: FDA-Public Use
  Company Number: DE-GLAXOSMITHKLINE-D0072749A

PATIENT
  Age: 60 Year
  Sex: Male

DRUGS (1)
  1. REQUIP [Suspect]
     Indication: PARKINSON'S DISEASE
     Route: 048
     Dates: start: 20060101

REACTIONS (3)
  - PARKINSON'S DISEASE [None]
  - MEDICATION RESIDUE [None]
  - PRODUCT QUALITY ISSUE [None]
